FAERS Safety Report 7470686-6 (Version None)
Quarter: 2011Q2

REPORT INFORMATION
  Report Type: 
  Country: None (occurrence: None)
  Receive Date: 20110510
  Receipt Date: 20110405
  Transmission Date: 20111010
  Serious: No
  Sender: FDA-Public Use
  Company Number: US-BAYER-2011-030591

PATIENT
  Sex: Male
  Weight: 70 kg

DRUGS (4)
  1. ZOCOR [Concomitant]
  2. MULTI-VITAMIN [Concomitant]
  3. VITAMIN D [Concomitant]
  4. ALEVE (CAPLET) [Suspect]
     Indication: ARTHRITIS
     Dosage: 220 MG, BID
     Dates: start: 20110301

REACTIONS (1)
  - NO ADVERSE EVENT [None]
